FAERS Safety Report 5241478-3 (Version None)
Quarter: 2007Q1

REPORT INFORMATION
  Report Type: 
  Country: None (occurrence: None)
  Receive Date: 20070220
  Receipt Date: 20070214
  Transmission Date: 20070707
  Serious: Yes (Hospitalization)
  Sender: FDA-Public Use
  Company Number: US-GLAXOSMITHKLINE-A0639583A

PATIENT
  Age: 59 Year
  Sex: Female

DRUGS (2)
  1. PAROXETINE HCL [Suspect]
     Indication: DEPRESSION
     Dosage: 40MG PER DAY
     Route: 048
     Dates: start: 20051101
  2. NO CONCURRENT MEDICATION [Concomitant]

REACTIONS (7)
  - DEPRESSION [None]
  - DRUG INEFFECTIVE [None]
  - IMMOBILE [None]
  - PHARMACEUTICAL PRODUCT COMPLAINT [None]
  - SOCIAL AVOIDANT BEHAVIOUR [None]
  - SUICIDAL IDEATION [None]
  - THROMBOSIS [None]
